FAERS Safety Report 5663492-6 (Version None)
Quarter: 2008Q1

REPORT INFORMATION
  Report Type: 
  Country: None (occurrence: None)
  Receive Date: 20080307
  Receipt Date: 20080229
  Transmission Date: 20080703
  Serious: Yes (Hospitalization)
  Sender: FDA-Public Use
  Company Number: TPA2007A02078

PATIENT
  Age: 54 Year
  Sex: Female
  Weight: 68.0396 kg

DRUGS (11)
  1. ROZEREM [Suspect]
     Indication: INSOMNIA
     Dosage: 8 MG, QHS, PER ORAL; 16 MG, QHS, PER ORAL; 16 MG, QHS, PER ORAL
     Route: 048
     Dates: start: 20070901, end: 20070901
  2. ROZEREM [Suspect]
     Indication: INSOMNIA
     Dosage: 8 MG, QHS, PER ORAL; 16 MG, QHS, PER ORAL; 16 MG, QHS, PER ORAL
     Route: 048
     Dates: start: 20070801
  3. ROZEREM [Suspect]
     Indication: INSOMNIA
     Dosage: 8 MG, QHS, PER ORAL; 16 MG, QHS, PER ORAL; 16 MG, QHS, PER ORAL
     Route: 048
     Dates: start: 20070901
  4. AMBIEN CR [Suspect]
     Indication: INSOMNIA
     Dosage: QHS, PER ORAL
     Route: 048
     Dates: start: 20060101, end: 20070901
  5. IMITREX [Suspect]
     Indication: HEADACHE
     Dosage: 50 MG, AS REQUIRED, PER ORAL; 50 MG, AS REQUIRED, PER ORAL
     Route: 048
     Dates: start: 20030101, end: 20070901
  6. IMITREX [Suspect]
     Indication: HEADACHE
     Dosage: 50 MG, AS REQUIRED, PER ORAL; 50 MG, AS REQUIRED, PER ORAL
     Route: 048
     Dates: start: 20070901
  7. UNKNOWN SLEEP MEDICATION (ALL OTHER THERAPEUTIC PRODUCTS) [Suspect]
     Indication: SLEEP DISORDER THERAPY
     Dates: start: 20070801, end: 20070801
  8. VICODIN [Concomitant]
  9. FLEXERIL [Concomitant]
  10. UNKNOWN ANTI-INFLAMMATORY (ALL OTHER THERAPEUTIC PRODUCTS) [Concomitant]
  11. UNKNOWN ANTI-DEPRESSANT (ANTIDEPRESSANTS) [Concomitant]

REACTIONS (8)
  - DRUG HYPERSENSITIVITY [None]
  - FEELING ABNORMAL [None]
  - HALLUCINATIONS, MIXED [None]
  - HEADACHE [None]
  - INSOMNIA [None]
  - PHARYNGEAL OEDEMA [None]
  - SWOLLEN TONGUE [None]
  - THYROID FUNCTION TEST ABNORMAL [None]
